FAERS Safety Report 5216133-6 (Version None)
Quarter: 2007Q1

REPORT INFORMATION
  Report Type: 
  Country: None (occurrence: None)
  Receive Date: 20070123
  Receipt Date: 20070111
  Transmission Date: 20070707
  Serious: Yes (Other)
  Sender: FDA-Public Use
  Company Number: US-PFIZER INC-2007004171

PATIENT
  Age: 62 Year
  Sex: Male
  Weight: 104.3 kg

DRUGS (5)
  1. CHANTIX [Suspect]
     Indication: EX-SMOKER
     Route: 048
     Dates: start: 20061113, end: 20070108
  2. LIPITOR [Suspect]
     Indication: BLOOD CHOLESTEROL INCREASED
  3. DIOVAN HCT [Concomitant]
     Route: 048
  4. METAMUCIL-2 [Concomitant]
     Route: 048
  5. PEPCID AC [Concomitant]
     Route: 048

REACTIONS (6)
  - ABNORMAL DREAMS [None]
  - BLOOD CREATININE DECREASED [None]
  - MUSCLE FATIGUE [None]
  - NAUSEA [None]
  - PROTEINURIA [None]
  - SLEEP DISORDER [None]
